FAERS Safety Report 22332425 (Version 3)
Quarter: 2023Q4

REPORT INFORMATION
  Report Type: Spontaneous
  Country: US (occurrence: US)
  Receive Date: 20230517
  Receipt Date: 20231107
  Transmission Date: 20240110
  Serious: No
  Sender: FDA-Public Use
  Company Number: US-PFIZER INC-PV202300086041

PATIENT
  Age: 9 Year
  Sex: Female

DRUGS (3)
  1. OXBRYTA [Suspect]
     Active Substance: VOXELOTOR
     Indication: Sickle cell anaemia with crisis
     Dosage: 900 MG, 1X/DAY
     Route: 048
     Dates: start: 20221202
  2. HYDROXYUREA [Concomitant]
     Active Substance: HYDROXYUREA
     Dosage: 600 MG, 1X/DAY
     Route: 048
  3. FOLIC ACID [Concomitant]
     Active Substance: FOLIC ACID
     Dosage: UNK

REACTIONS (8)
  - Abdominal pain [Unknown]
  - Diarrhoea [Unknown]
  - White blood cell count increased [Unknown]
  - Product use complaint [Unknown]
  - Nausea [Recovered/Resolved]
  - Headache [Recovered/Resolved]
  - Rash [Recovered/Resolved]
  - Diarrhoea [Recovered/Resolved]

NARRATIVE: CASE EVENT DATE: 20220101
